FAERS Safety Report 6235585-6 (Version None)
Quarter: 2009Q2

REPORT INFORMATION
  Report Type: 
  Country: None (occurrence: None)
  Receive Date: 20090616
  Receipt Date: 20090608
  Transmission Date: 20091009
  Serious: Yes (Hospitalization)
  Sender: FDA-Public Use
  Company Number: 2009AP002306

PATIENT
  Age: 68 Year
  Sex: Female

DRUGS (12)
  1. CLARITHROMYCIN [Suspect]
     Dosage: 500 MGBID
  2. OTHER RESPIRATORY SYSTEM PRODUCTS (OTHER RESPIRATORY SYSTEM PRODUCTS) [Suspect]
     Indication: CHRONIC OBSTRUCTIVE PULMONARY DISEASE
  3. NICOTINE [Suspect]
     Indication: SMOKING CESSATION THERAPY
     Dosage: UNKNOWN;PAT;TDER;UNKNOWN
     Dates: start: 20090401, end: 20090406
  4. PREDNISOLONE [Suspect]
     Dosage: 30 MG
  5. AMLODIPINE [Concomitant]
  6. ACETYLSALICYLIC ACID (ACETYSALICYLIC ACID) [Concomitant]
  7. DOSULEPIN (DOSULEPIN) [Concomitant]
  8. OMEPRAZOLE [Concomitant]
  9. BUDESONIDE [Concomitant]
  10. FORMOTEROL (FORMOTEROL) [Concomitant]
  11. LEVOTHYROXINE SODIUM [Concomitant]
  12. SALBUTAMOL (SALBUTAMOL) [Concomitant]

REACTIONS (4)
  - DRUG INTERACTION [None]
  - DYSPNOEA [None]
  - EXERCISE TOLERANCE DECREASED [None]
  - PRODUCTIVE COUGH [None]
